FAERS Safety Report 4343953-2 (Version None)
Quarter: 2004Q2

REPORT INFORMATION
  Report Type: 
  Country: None (occurrence: None)
  Receive Date: 20040422
  Receipt Date: 20031124
  Transmission Date: 20050107
  Serious: Yes (Other)
  Sender: FDA-Public Use
  Company Number: DE-ROCHE-352886

PATIENT
  Age: 60 Year
  Sex: Male
  Weight: 80 kg

DRUGS (8)
  1. ROCEPHIN [Suspect]
     Indication: PNEUMONIA
     Route: 065
     Dates: start: 19950515, end: 19950615
  2. MICARDIS [Concomitant]
     Route: 048
  3. TENORETIC-MITE [Concomitant]
     Route: 048
  4. CORVATON RETARD [Concomitant]
     Route: 048
  5. ASPIRIN 100 [Concomitant]
     Route: 048
  6. MOTENS [Concomitant]
     Route: 048
  7. ROEKAN [Concomitant]
  8. ISCOVER [Concomitant]

REACTIONS (6)
  - ASTHENIA [None]
  - GAIT DISTURBANCE [None]
  - MICROANGIOPATHY [None]
  - NERVOUS SYSTEM DISORDER [None]
  - PARAESTHESIA [None]
  - VESTIBULAR DISORDER [None]
